FAERS Safety Report 4465240-4 (Version None)
Quarter: 2004Q3

REPORT INFORMATION
  Report Type: 
  Country: None (occurrence: None)
  Receive Date: 20040929
  Receipt Date: 20040426
  Transmission Date: 20050211
  Serious: Yes (Hospitalization, Other)
  Sender: FDA-Public Use
  Company Number: 2004028181

PATIENT
  Age: 85 Year
  Sex: Female

DRUGS (3)
  1. GLUCOTROL [Suspect]
     Indication: DIABETES MELLITUS NON-INSULIN-DEPENDENT
     Dosage: ORAL
     Route: 048
     Dates: end: 20040301
  2. DONEPEZIL HCL [Suspect]
     Indication: AMNESIA
     Dosage: (10 MG); ORAL
     Route: 048
     Dates: start: 20040201, end: 20040301
  3. DONEPEZIL HCL [Suspect]
     Indication: CONFUSIONAL STATE
     Dosage: (10 MG); ORAL
     Route: 048
     Dates: start: 20040201, end: 20040301

REACTIONS (7)
  - ANOREXIA [None]
  - CARDIAC FAILURE [None]
  - CARDIAC OPERATION [None]
  - CONFUSIONAL STATE [None]
  - DEMENTIA ALZHEIMER'S TYPE [None]
  - HALLUCINATION [None]
  - NAUSEA [None]
